FAERS Safety Report 10366452 (Version 1)
Quarter: 2014Q1

REPORT INFORMATION
  Report Type: Spontaneous
  Country: US (occurrence: None)
  Receive Date: 20140306
  Receipt Date: 20140306
  Transmission Date: 20141002
  Serious: Yes (Other)
  Sender: FDA-Public Use
  Company Number: 163-21880-13033189

PATIENT
  Age: 56 Year
  Sex: Male
  Weight: 70.4 kg

DRUGS (7)
  1. REVLIMID (LENALIDOMIDE) (25 MILLIGRAMS, CAPSULES) [Suspect]
     Indication: PLASMA CELL MYELOMA
     Dosage: 25 MG, 14 IN 21 D, PO
     Route: 048
     Dates: start: 20130122
  2. BORTEZOMIB [Concomitant]
  3. CYCLOBENZAPRINE [Concomitant]
  4. ACYCLOVIR [Concomitant]
  5. ZOLEDRONIC ACID [Concomitant]
  6. TRAMADOL [Concomitant]
  7. ASPIRIN (ACETYLSALICYLIC ACID) [Concomitant]

REACTIONS (1)
  - Pulmonary embolism [None]
